FAERS Safety Report 19404657 (Version 10)
Quarter: 2022Q2

REPORT INFORMATION
  Report Type: Spontaneous
  Country: CA (occurrence: CA)
  Receive Date: 20210611
  Receipt Date: 20220621
  Transmission Date: 20220721
  Serious: Yes (Other)
  Sender: FDA-Public Use
  Company Number: CA-CELLTRION INC.-2020CA028292

PATIENT

DRUGS (6)
  1. INFLECTRA [Suspect]
     Active Substance: INFLIXIMAB-DYYB
     Indication: Colitis ulcerative
     Dosage: 600 MG, EVERY 6 WEEKS
     Route: 042
     Dates: start: 20210122
  2. INFLECTRA [Suspect]
     Active Substance: INFLIXIMAB-DYYB
     Dosage: 600 MG, EVERY 6 WEEKS
     Route: 042
     Dates: start: 20210305
  3. METHOTREXATE SODIUM [Suspect]
     Active Substance: METHOTREXATE SODIUM
     Dosage: UNK
  4. AMLODIPINE BESYLATE\PERINDOPRIL ERBUMINE [Concomitant]
     Active Substance: AMLODIPINE BESYLATE\PERINDOPRIL ERBUMINE
     Dosage: UNK
  5. MESALAMINE [Concomitant]
     Active Substance: MESALAMINE
     Dosage: UNK
  6. PENICILLIN [Concomitant]
     Active Substance: PENICILLIN
     Dosage: UNK

REACTIONS (13)
  - Limb injury [Recovered/Resolved]
  - Tendon disorder [Not Recovered/Not Resolved]
  - Intentional product use issue [Unknown]
  - Off label use [Unknown]
  - Off label use [Unknown]
  - Pain [Unknown]
  - Myalgia [Unknown]
  - Pain in extremity [Not Recovered/Not Resolved]
  - Arthritis [Unknown]
  - Chest discomfort [Unknown]
  - Palpitations [Unknown]
  - Arthralgia [Unknown]
  - Joint stiffness [Unknown]

NARRATIVE: CASE EVENT DATE: 20210101
